FAERS Safety Report 8235545-X (Version None)
Quarter: 2012Q1

REPORT INFORMATION
  Report Type: 
  Country: None (occurrence: None)
  Receive Date: 20120326
  Receipt Date: 20120317
  Transmission Date: 20120608
  Serious: Yes (Hospitalization)
  Sender: FDA-Public Use
  Company Number: US-US-EMD SERONO, INC.-7059539

PATIENT
  Sex: Female

DRUGS (3)
  1. NAPRELAN [Concomitant]
     Indication: SWELLING
  2. REBIF [Suspect]
     Indication: MULTIPLE SCLEROSIS
     Route: 058
     Dates: start: 20031017
  3. NAPRELAN [Concomitant]
     Indication: PAIN

REACTIONS (6)
  - CONCUSSION [None]
  - FATIGUE [None]
  - FEELING HOT [None]
  - INTERVERTEBRAL DISC DISORDER [None]
  - FALL [None]
  - UNEVALUABLE EVENT [None]
